FAERS Safety Report 4895239-5 (Version None)
Quarter: 2006Q1

REPORT INFORMATION
  Report Type: 
  Country: None (occurrence: None)
  Receive Date: 20060125
  Receipt Date: 20060113
  Transmission Date: 20060701
  Serious: Yes (Hospitalization)
  Sender: FDA-Public Use
  Company Number: 2006006197

PATIENT
  Age: 24 Year
  Sex: Female
  Weight: 47.5 kg

DRUGS (6)
  1. VORICONAZOLE (VORICONAZOLE) [Suspect]
     Indication: PROPHYLAXIS
     Dosage: 400 MG (200 MG, 2 IN 1 D), ORAL
     Route: 048
     Dates: start: 20051025
  2. CYCLOSPORINE [Concomitant]
  3. ACYCLOVIR [Concomitant]
  4. CIPROFLOXACIN [Concomitant]
  5. OMEPRAZOLE [Concomitant]
  6. ACETAMINOPHEN [Concomitant]

REACTIONS (6)
  - EYE SWELLING [None]
  - FUNGUS SPUTUM TEST POSITIVE [None]
  - MALAISE [None]
  - MYALGIA [None]
  - PRODUCTIVE COUGH [None]
  - PYREXIA [None]
